FAERS Safety Report 22351352 (Version 5)
Quarter: 2023Q4

REPORT INFORMATION
  Report Type: Spontaneous
  Country: US (occurrence: US)
  Receive Date: 20230522
  Receipt Date: 20231025
  Transmission Date: 20240110
  Serious: Yes (Other)
  Sender: FDA-Public Use
  Company Number: US-Stemline Therapeutics, Inc.-2023ST000635

PATIENT
  Age: 54 Year
  Sex: Female

DRUGS (2)
  1. ORSERDU [Suspect]
     Active Substance: ELACESTRANT
     Indication: Product used for unknown indication
     Route: 048
     Dates: start: 20230406
  2. PROTONIX [Concomitant]
     Active Substance: PANTOPRAZOLE SODIUM
     Indication: Product used for unknown indication
     Route: 065

REACTIONS (14)
  - Bone cancer [Unknown]
  - Upper respiratory tract infection [Unknown]
  - Oesophagitis [Not Recovered/Not Resolved]
  - Dysphagia [Unknown]
  - Product use complaint [Unknown]
  - Cancer pain [Unknown]
  - Product dose omission issue [Unknown]
  - Retching [Unknown]
  - Product size issue [Unknown]
  - Product use issue [Unknown]
  - Vomiting [Unknown]
  - Nausea [Unknown]
  - Fatigue [Not Recovered/Not Resolved]
  - Gastrooesophageal reflux disease [Not Recovered/Not Resolved]

NARRATIVE: CASE EVENT DATE: 20230401
